FAERS Safety Report 20997270 (Version 1)
Quarter: 2022Q2

REPORT INFORMATION
  Report Type: Spontaneous
  Country: FR (occurrence: FR)
  Receive Date: 20220623
  Receipt Date: 20220623
  Transmission Date: 20220721
  Serious: Yes (Hospitalization)
  Sender: FDA-Public Use
  Company Number: FR-AFSSAPS-CN20220878

PATIENT
  Age: 80 Year
  Sex: Male
  Weight: 83 kg

DRUGS (4)
  1. FLUOXETINE [Suspect]
     Active Substance: FLUOXETINE HYDROCHLORIDE
     Indication: Depression
     Dosage: 20 MILLIGRAM, DAILY
     Route: 048
  2. BENSERAZIDE HYDROCHLORIDE\LEVODOPA [Suspect]
     Active Substance: BENSERAZIDE HYDROCHLORIDE\LEVODOPA
     Indication: Parkinson^s disease
     Dosage: 125 MILLIGRAM, QID
     Route: 048
  3. OPDIVO [Suspect]
     Active Substance: NIVOLUMAB
     Indication: Tonsil cancer metastatic
     Dosage: 480 MILLIGRAM, 1DOSE/4WEEKS
     Route: 042
     Dates: start: 20190920, end: 20220307
  4. AVODART [Concomitant]
     Active Substance: DUTASTERIDE
     Indication: Parkinson^s disease
     Dosage: 0.5 MILLIGRAM, DAILY
     Route: 048

REACTIONS (1)
  - Diarrhoea [Recovered/Resolved]

NARRATIVE: CASE EVENT DATE: 20220212
